FAERS Safety Report 24053131 (Version 2)
Quarter: 2024Q3

REPORT INFORMATION
  Report Type: Spontaneous
  Country: FR (occurrence: FR)
  Receive Date: 20240705
  Receipt Date: 20240716
  Transmission Date: 20241016
  Serious: Yes (Other)
  Sender: AUROBINDO
  Company Number: FR-AFSSAPS-RN2024000699

PATIENT
  Age: 23 Year
  Sex: Male

DRUGS (10)
  1. LOXAPINE [Suspect]
     Active Substance: LOXAPINE
     Indication: Behaviour disorder
     Dosage: 75 MILLIGRAM, DAILY
     Route: 048
     Dates: start: 20240601, end: 20240608
  2. OLANZAPINE [Suspect]
     Active Substance: OLANZAPINE
     Indication: Behaviour disorder
     Dosage: 10 MILLIGRAM (10 MG LE 01/06 PUIS 20 MG ? PARTIR DU 03/06)
     Route: 048
     Dates: start: 20240601, end: 20240609
  3. OLANZAPINE [Suspect]
     Active Substance: OLANZAPINE
     Dosage: 20 MILLIGRAM (10 MG LE 01/06 PUIS 20 MG ? PARTIR DU 03/06)
     Route: 048
     Dates: start: 20240603, end: 20240609
  4. TERALITHE [Suspect]
     Active Substance: LITHIUM CARBONATE
     Indication: Bipolar disorder
     Dosage: 2 DOSAGE FORM, ONCE A DAY(400 MG X 2)
     Route: 048
     Dates: start: 20240605, end: 20240610
  5. HALOPERIDOL [Suspect]
     Active Substance: HALOPERIDOL
     Indication: Behaviour disorder
     Dosage: 10 MILLIGRAM (10 MG LE 04/06, 15 MG LE 06/06, 20 MG LE 08/06)
     Route: 048
     Dates: start: 20240604, end: 20240609
  6. HALOPERIDOL [Suspect]
     Active Substance: HALOPERIDOL
     Dosage: 15 MILLIGRAM (10 MG LE 04/06, 15 MG LE 06/06, 20 MG LE 08/06)
     Route: 048
     Dates: start: 20240606
  7. HALOPERIDOL [Suspect]
     Active Substance: HALOPERIDOL
     Dosage: 20 MILLIGRAM (10 MG LE 04/06, 15 MG LE 06/06, 20 MG LE 08/06)
     Route: 048
     Dates: start: 20240608, end: 20240609
  8. DIAZEPAM [Concomitant]
     Active Substance: DIAZEPAM
     Indication: Product used for unknown indication
     Dosage: UNK
     Route: 048
     Dates: start: 20240601, end: 20240604
  9. LORAZEPAM [Concomitant]
     Active Substance: LORAZEPAM
     Indication: Behaviour disorder
     Dosage: UNK
     Route: 048
     Dates: start: 20240605
  10. CYAMEMAZINE [Concomitant]
     Active Substance: CYAMEMAZINE
     Indication: Product administration error
     Dosage: UNK
     Route: 048
     Dates: start: 20240607, end: 20240607

REACTIONS (3)
  - Blood creatine phosphokinase increased [Recovering/Resolving]
  - C-reactive protein increased [Recovering/Resolving]
  - Neuroleptic malignant syndrome [Recovering/Resolving]

NARRATIVE: CASE EVENT DATE: 20240610
